FAERS Safety Report 21226912 (Version 2)
Quarter: 2022Q3

REPORT INFORMATION
  Report Type: Spontaneous
  Country: CN (occurrence: CN)
  Receive Date: 20220818
  Receipt Date: 20220825
  Transmission Date: 20221027
  Serious: No
  Sender: FDA-Public Use
  Company Number: CN-BRISTOL-MYERS SQUIBB COMPANY-2022-088211

PATIENT
  Age: 56 Year
  Sex: Male

DRUGS (11)
  1. ABRAXANE [Suspect]
     Active Substance: PACLITAXEL
     Indication: Sarcomatoid carcinoma of the lung
     Dosage: (150 MG, D1/D8)
     Route: 065
     Dates: start: 202009
  2. ABRAXANE [Suspect]
     Active Substance: PACLITAXEL
     Dosage: (150 MG D1)
     Route: 065
  3. CISPLATIN [Suspect]
     Active Substance: CISPLATIN
     Indication: Sarcomatoid carcinoma of the lung
     Dosage: (20 MG, D1-3)
     Route: 065
     Dates: start: 202009
  4. CISPLATIN [Suspect]
     Active Substance: CISPLATIN
     Dosage: (20 MG D1-3)
     Route: 065
  5. CATEQUENTINIB [Concomitant]
     Active Substance: CATEQUENTINIB
     Indication: Sarcomatoid carcinoma of the lung
     Dosage: (12 MG QD)
     Route: 048
  6. CATEQUENTINIB [Concomitant]
     Active Substance: CATEQUENTINIB
     Route: 065
     Dates: start: 20201023
  7. CATEQUENTINIB [Concomitant]
     Active Substance: CATEQUENTINIB
     Dosage: SECOND CYCLE
     Route: 065
     Dates: start: 20201124
  8. CATEQUENTINIB [Concomitant]
     Active Substance: CATEQUENTINIB
     Dosage: THIRD CYCLE
     Route: 065
     Dates: start: 20210120
  9. TISLELIZUMAB [Concomitant]
     Active Substance: TISLELIZUMAB
     Indication: Sarcomatoid carcinoma of the lung
     Route: 065
     Dates: start: 20200929
  10. TISLELIZUMAB [Concomitant]
     Active Substance: TISLELIZUMAB
     Dosage: SECOND CYCLE
     Route: 065
     Dates: start: 20201124
  11. TISLELIZUMAB [Concomitant]
     Active Substance: TISLELIZUMAB
     Dosage: THIRD CYCLE
     Route: 065
     Dates: start: 20210120

REACTIONS (3)
  - Myelosuppression [Unknown]
  - Liver injury [Unknown]
  - Intentional product use issue [Unknown]
